FAERS Safety Report 6063245-3 (Version None)
Quarter: 2009Q1

REPORT INFORMATION
  Report Type: 
  Country: None (occurrence: None)
  Receive Date: 20090203
  Receipt Date: 20081221
  Transmission Date: 20090719
  Serious: Yes (Other)
  Sender: FDA-Public Use
  Company Number: US-PFIZER INC-2008012067

PATIENT
  Sex: Male
  Weight: 102.1 kg

DRUGS (10)
  1. CHANTIX [Suspect]
     Indication: SMOKING CESSATION THERAPY
     Route: 048
     Dates: start: 20080101, end: 20081016
  2. LITHIUM CARBONATE [Interacting]
  3. KLONOPIN [Suspect]
  4. THORAZINE [Suspect]
  5. BUTALBITAL [Interacting]
  6. WELLBUTRIN [Suspect]
  7. CORGARD [Concomitant]
  8. TOBACCO [Concomitant]
  9. DRUG, UNSPECIFIED [Concomitant]
  10. MUSCLE RELAXANTS [Concomitant]

REACTIONS (15)
  - ABNORMAL DREAMS [None]
  - ANXIETY [None]
  - CLAUSTROPHOBIA [None]
  - DRUG INTERACTION [None]
  - DYSGEUSIA [None]
  - EMOTIONAL DISORDER [None]
  - FEELING ABNORMAL [None]
  - FEELING OF RELAXATION [None]
  - FRUSTRATION [None]
  - MEMORY IMPAIRMENT [None]
  - ORAL SURGERY [None]
  - PARANOIA [None]
  - PERSONALITY CHANGE [None]
  - ROAD TRAFFIC ACCIDENT [None]
  - STRESS [None]
